FAERS Safety Report 24344679 (Version 2)
Quarter: 2024Q3

REPORT INFORMATION
  Report Type: Spontaneous
  Country: US (occurrence: US)
  Receive Date: 20240920
  Receipt Date: 20240927
  Transmission Date: 20241017
  Serious: Yes (Other)
  Sender: Alora Pharma
  Company Number: US-ACELLA PHARMACEUTICALS, LLC-2024ALO00359

PATIENT
  Age: 28 Year
  Sex: Female
  Weight: 95.238 kg

DRUGS (3)
  1. METHYLPHENIDATE HYDROCHLORIDE [Suspect]
     Active Substance: METHYLPHENIDATE HYDROCHLORIDE
     Indication: Attention deficit hyperactivity disorder
     Dosage: 36 MG, 1X/DAY IN THE MORNING
     Route: 048
     Dates: start: 20240721, end: 20240724
  2. PHENTERMINE [Concomitant]
     Active Substance: PHENTERMINE\PHENTERMINE HYDROCHLORIDE
  3. VICTOZA [Concomitant]
     Active Substance: LIRAGLUTIDE

REACTIONS (11)
  - Blindness transient [Unknown]
  - Dyskinesia [Unknown]
  - Acne cystic [Unknown]
  - Hot flush [Unknown]
  - Nausea [Unknown]
  - Tremor [Unknown]
  - Muscle spasms [Unknown]
  - Insomnia [Unknown]
  - Headache [Unknown]
  - Product substitution issue [Recovered/Resolved]
  - Reaction to excipient [Unknown]

NARRATIVE: CASE EVENT DATE: 20240701
